FAERS Safety Report 21675676 (Version 1)
Quarter: 2022Q4

REPORT INFORMATION
  Report Type: Spontaneous
  Country: US (occurrence: None)
  Receive Date: 20221202
  Receipt Date: 20221202
  Transmission Date: 20230113
  Serious: Yes (Disabling)
  Sender: FDA-Public Use
  Company Number: None

PATIENT
  Age: 31 Year
  Sex: Male
  Weight: 77.4 kg

DRUGS (8)
  1. CLOBETASOL [Suspect]
     Active Substance: CLOBETASOL
  2. ADBRY [Concomitant]
     Active Substance: TRALOKINUMAB-LDRM
  3. PROTOPIC [Concomitant]
     Active Substance: TACROLIMUS
  4. Lipo C [Concomitant]
  5. VITAMIN D NOS [Concomitant]
     Active Substance: VITAMIN D NOS
  6. BIOTIN [Concomitant]
     Active Substance: BIOTIN
  7. ZINC [Concomitant]
     Active Substance: ZINC
  8. CALCIUM [Concomitant]
     Active Substance: CALCIUM

REACTIONS (6)
  - Withdrawal syndrome [None]
  - Weight decreased [None]
  - Body temperature fluctuation [None]
  - Skin exfoliation [None]
  - Alopecia [None]
  - Skin odour abnormal [None]

NARRATIVE: CASE EVENT DATE: 20180102
